FAERS Safety Report 5297040-X (Version None)
Quarter: 2007Q1

REPORT INFORMATION
  Report Type: 
  Country: None (occurrence: None)
  Receive Date: 20070201
  Receipt Date: 20061003
  Transmission Date: 20070707
  Serious: No
  Sender: FDA-Public Use
  Company Number: 2006PV022451

PATIENT
  Age: 52 Year
  Sex: Female

DRUGS (3)
  1. BYETTA [Suspect]
     Indication: INSULIN RESISTANCE
     Dosage: SEE IMAGE
     Route: 058
     Dates: start: 20060801, end: 20060906
  2. BYETTA [Suspect]
     Indication: INSULIN RESISTANCE
     Dosage: SEE IMAGE
     Route: 058
     Dates: start: 20060907
  3. BYETTA [Suspect]

REACTIONS (6)
  - ABDOMINAL PAIN UPPER [None]
  - FEELING ABNORMAL [None]
  - INJECTION SITE PAIN [None]
  - PAIN [None]
  - VOMITING [None]
  - WEIGHT DECREASED [None]
